FAERS Safety Report 13949161 (Version 8)
Quarter: 2019Q1

REPORT INFORMATION
  Report Type: Spontaneous
  Country: BR (occurrence: BR)
  Receive Date: 20170908
  Receipt Date: 20190129
  Transmission Date: 20190417
  Serious: Yes (Other)
  Sender: FDA-Public Use
  Company Number: BR-GLAXOSMITHKLINE-BR2016GSK177634

PATIENT
  Age: 50 Year
  Sex: Female
  Weight: 86 kg

DRUGS (4)
  1. DIPYRONE [Concomitant]
     Active Substance: DIPYRONE
     Indication: PRODUCT USED FOR UNKNOWN INDICATION
     Dosage: UNK
  2. PREDNISONE. [Suspect]
     Active Substance: PREDNISONE
     Indication: SYSTEMIC LUPUS ERYTHEMATOSUS
     Dosage: 5 MG, QD
     Dates: start: 20170109
  3. AZATHIOPRINE. [Concomitant]
     Active Substance: AZATHIOPRINE
     Indication: PRODUCT USED FOR UNKNOWN INDICATION
     Dosage: 1 DF(TABLET), QD
     Dates: start: 20170109
  4. BENLYSTA [Suspect]
     Active Substance: BELIMUMAB
     Indication: SYSTEMIC LUPUS ERYTHEMATOSUS
     Dosage: UNK
     Route: 042
     Dates: start: 20161128

REACTIONS (27)
  - Headache [Unknown]
  - Diarrhoea [Unknown]
  - Swelling [Unknown]
  - Influenza [Unknown]
  - Peripheral swelling [Unknown]
  - Back pain [Unknown]
  - Pain [Unknown]
  - Underdose [Recovered/Resolved]
  - Vomiting [Unknown]
  - Back injury [Recovering/Resolving]
  - Retching [Unknown]
  - Product dose omission [Not Recovered/Not Resolved]
  - Cholelithiasis [Unknown]
  - Decreased immune responsiveness [Unknown]
  - Skin discolouration [Unknown]
  - Dizziness [Unknown]
  - Inappropriate schedule of product administration [Recovered/Resolved]
  - Labyrinthitis [Unknown]
  - Weight increased [Unknown]
  - Somnolence [Unknown]
  - Anxiety [Unknown]
  - Tachycardia [Unknown]
  - Pruritus [Unknown]
  - Arthralgia [Unknown]
  - Circumstance or information capable of leading to medication error [Recovered/Resolved]
  - Abdominal pain upper [Unknown]
  - Bacterial infection [Recovered/Resolved]

NARRATIVE: CASE EVENT DATE: 20170101
